FAERS Safety Report 24343515 (Version 1)
Quarter: 2024Q3

REPORT INFORMATION
  Report Type: Spontaneous
  Country: CA (occurrence: CA)
  Receive Date: 20240920
  Receipt Date: 20240920
  Transmission Date: 20241017
  Serious: Yes (Other)
  Sender: BAUSCH AND LOMB
  Company Number: CA-BAUSCH-BL-2024-013964

PATIENT
  Age: 64 Year
  Sex: Male

DRUGS (1)
  1. ALBUTEROL SULFATE [Suspect]
     Active Substance: ALBUTEROL SULFATE
     Indication: Product used for unknown indication
     Route: 065

REACTIONS (9)
  - Increased bronchial secretion [Unknown]
  - Loss of personal independence in daily activities [Unknown]
  - Lung disorder [Unknown]
  - Dyspnoea [Unknown]
  - Pulmonary congestion [Unknown]
  - Mobility decreased [Unknown]
  - Cough [Unknown]
  - Wheezing [Unknown]
  - Asthenia [Unknown]
